FAERS Safety Report 11146699 (Version 1)
Quarter: 2015Q2

REPORT INFORMATION
  Report Type: Spontaneous
  Country: None (occurrence: None)
  Receive Date: 20150527
  Receipt Date: 20150527
  Transmission Date: 20150821
  Serious: No
  Sender: FDA-Public Use
  Company Number: None

PATIENT
  Age: 40 Year
  Sex: Female
  Weight: 58.97 kg

DRUGS (2)
  1. BUPROPRION XL [Suspect]
     Active Substance: BUPROPION
     Indication: DEPRESSION
     Dosage: 1 PILL / DAY ONCE DAILY TAKEN BY MOUTH
     Route: 048
     Dates: start: 20150401, end: 20150521
  2. NASONEX [Concomitant]
     Active Substance: MOMETASONE FUROATE

REACTIONS (9)
  - Dyspepsia [None]
  - Drug ineffective [None]
  - Pain [None]
  - Thinking abnormal [None]
  - Apathy [None]
  - Disturbance in attention [None]
  - Constipation [None]
  - Epigastric discomfort [None]
  - Product substitution issue [None]

NARRATIVE: CASE EVENT DATE: 20150501
